FAERS Safety Report 19040449 (Version 1)
Quarter: 2021Q1

REPORT INFORMATION
  Report Type: Spontaneous
  Country: US (occurrence: US)
  Receive Date: 20210323
  Receipt Date: 20210323
  Transmission Date: 20210420
  Serious: No
  Sender: FDA-Public Use
  Company Number: US-SA-2021SA096140

PATIENT
  Age: 62 Year
  Sex: Female

DRUGS (17)
  1. ATORVASTATIN [Concomitant]
     Active Substance: ATORVASTATIN
  2. CEFDINIR. [Concomitant]
     Active Substance: CEFDINIR
  3. GABAPENTIN. [Concomitant]
     Active Substance: GABAPENTIN
  4. IRBESARTAN. [Concomitant]
     Active Substance: IRBESARTAN
  5. LEVOTHYROXINE. [Concomitant]
     Active Substance: LEVOTHYROXINE
  6. OZEMPIC [Concomitant]
     Active Substance: SEMAGLUTIDE
  7. SAXENDA [Concomitant]
     Active Substance: LIRAGLUTIDE
  8. TOUJEO [Concomitant]
     Active Substance: INSULIN GLARGINE
  9. MONTELUKAST [Concomitant]
     Active Substance: MONTELUKAST SODIUM
  10. ELIQUIS [Concomitant]
     Active Substance: APIXABAN
  11. VERAPAMIL [Concomitant]
     Active Substance: VERAPAMIL HYDROCHLORIDE
  12. HYDROCHLOROTHIAZIDE;LOSARTAN [Concomitant]
     Active Substance: HYDROCHLOROTHIAZIDE\LOSARTAN
  13. COVID?19 VACCINE NOS. [Suspect]
     Active Substance: COVID-19 VACCINE NOS
     Dates: start: 20210313
  14. CLARITINE [Concomitant]
     Active Substance: LORATADINE
  15. VITAMIN D3 [Concomitant]
     Active Substance: CHOLECALCIFEROL
  16. DUPIXENT [Suspect]
     Active Substance: DUPILUMAB
     Indication: DERMATITIS ATOPIC
     Dosage: 300 MG, QOW
     Route: 058
  17. HUMALOG [Concomitant]
     Active Substance: INSULIN LISPRO

REACTIONS (4)
  - Fatigue [Recovering/Resolving]
  - Inflammation [Recovering/Resolving]
  - Chills [Recovering/Resolving]
  - Eczema [Recovering/Resolving]

NARRATIVE: CASE EVENT DATE: 20210313
